FAERS Safety Report 8839647 (Version 2)
Quarter: 2013Q1

REPORT INFORMATION
  Report Type: Spontaneous
  Country: FR (occurrence: None)
  Receive Date: 20121011
  Receipt Date: 20130114
  Transmission Date: 20140127
  Serious: Yes (Hospitalization)
  Sender: FDA-Public Use
  Company Number: 1438730

PATIENT
  Age: 61 Year
  Sex: Male

DRUGS (16)
  1. VINCRISTINE SULFATE [Suspect]
     Indication: LYMPHOMA
     Route: 042
     Dates: start: 20120620
  2. DOXORUBICIN [Suspect]
     Indication: LYMPHOMA
     Route: 042
     Dates: start: 20120620
  3. ENDOXAN /00021101/ [Suspect]
     Indication: LYMPHOMA
     Route: 042
     Dates: start: 20120620
  4. ZYLORIC [Suspect]
     Indication: GOUT
     Route: 048
  5. ZOPHREN [Suspect]
     Indication: PRODUCT USED FOR UNKNOWN INDICATION
     Route: 042
     Dates: start: 20120620
  6. CORTANCYL [Suspect]
     Indication: PRODUCT USED FOR UNKNOWN INDICATION
     Route: 048
     Dates: start: 20120621, end: 20120624
  7. POLARAMINE [Suspect]
     Indication: HYPERSENSITIVITY
     Route: 048
  8. LOXEN [Suspect]
     Indication: HYPERTENSION
  9. ZELITREX [Suspect]
     Indication: PRODUCT USED FOR UNKNOWN INDICATION
     Route: 048
  10. SPECIAFOLDINE [Suspect]
     Indication: VITAMIN SUPPLEMENTATION
     Route: 048
  11. GRANOCYTE 34 [Suspect]
     Indication: PRODUCT USED FOR UNKNOWN INDICATION
     Route: 058
     Dates: start: 20120625, end: 20120630
  12. ARANESP [Suspect]
     Indication: ANAEMIA
     Route: 058
  13. METHYLPREDNISOLONE [Suspect]
     Indication: PROPHYLAXIS
     Route: 042
     Dates: start: 20120620
  14. MABTHERA [Suspect]
     Indication: LYMPHOMA
     Route: 042
     Dates: start: 20120620
  15. BACTRIM [Suspect]
     Indication: PROPHYLAXIS
     Dosage: MONDAY, TUESDAY, WEDNESDAY
  16. UROMITEXAN [Suspect]
     Indication: PROPHYLAXIS
     Dosage: 2 (415 MG)
     Route: 042
     Dates: start: 20120620

REACTIONS (2)
  - Neuropathy peripheral [None]
  - Myopathy toxic [None]
